FAERS Safety Report 7806541-9 (Version None)
Quarter: 2011Q4

REPORT INFORMATION
  Report Type: 
  Country: None (occurrence: None)
  Receive Date: 20111007
  Receipt Date: 20111007
  Transmission Date: 20120403
  Serious: No
  Sender: FDA-Public Use
  Company Number: None

PATIENT
  Sex: Male

DRUGS (1)
  1. ENBREL [Suspect]
     Indication: PSORIATIC ARTHROPATHY
     Dosage: 50 MG QWEEK SQ
     Route: 058
     Dates: start: 20110618, end: 20110925

REACTIONS (2)
  - HYPOPHAGIA [None]
  - STOMATITIS [None]
